FAERS Safety Report 6224114-9 (Version None)
Quarter: 2009Q2

REPORT INFORMATION
  Report Type: 
  Country: None (occurrence: None)
  Receive Date: 20090612
  Receipt Date: 20090305
  Transmission Date: 20091009
  Serious: No
  Sender: FDA-Public Use
  Company Number: US-ABBOTT-09P-163-0561419-00

PATIENT
  Sex: Male

DRUGS (2)
  1. HUMIRA [Suspect]
     Indication: RHEUMATOID ARTHRITIS
     Route: 058
     Dates: start: 20090304
  2. HUMIRA [Suspect]
     Indication: FIBROMYALGIA
     Dosage: SYRINGE
     Route: 058
     Dates: start: 20090101, end: 20090301

REACTIONS (1)
  - ACCIDENTAL EXPOSURE [None]
